FAERS Safety Report 6009186-9 (Version None)
Quarter: 2008Q4

REPORT INFORMATION
  Report Type: 
  Country: None (occurrence: None)
  Receive Date: 20081217
  Receipt Date: 20081202
  Transmission Date: 20090506
  Serious: Yes (Other)
  Sender: FDA-Public Use
  Company Number: US-BRISTOL-MYERS SQUIBB COMPANY-13694898

PATIENT
  Age: 73 Year
  Sex: Female

DRUGS (12)
  1. SINEMET [Suspect]
     Indication: PARKINSON'S DISEASE
     Route: 048
     Dates: start: 20000301
  2. ROFECOXIB [Concomitant]
     Indication: OSTEOARTHRITIS
     Dosage: FORM: TABLET.
     Route: 048
     Dates: start: 19990201, end: 20000101
  3. TYLENOL (CAPLET) [Concomitant]
  4. ASPIRIN [Concomitant]
  5. CARDIZEM [Concomitant]
  6. ALTACE [Concomitant]
  7. NORMODYNE [Concomitant]
  8. MEGACE [Concomitant]
  9. MULTIPLE VITAMIN [Concomitant]
  10. VITAMIN E [Concomitant]
  11. K-DUR [Concomitant]
  12. VITAMINS [Concomitant]

REACTIONS (7)
  - CEREBROVASCULAR ACCIDENT [None]
  - CONVULSION [None]
  - DIARRHOEA [None]
  - HALLUCINATION, AUDITORY [None]
  - HALLUCINATION, VISUAL [None]
  - INCONTINENCE [None]
  - NAUSEA [None]
